FAERS Safety Report 9685036 (Version 1)
Quarter: 2013Q4

REPORT INFORMATION
  Report Type: Spontaneous
  Country: FR (occurrence: FR)
  Receive Date: 20131113
  Receipt Date: 20131113
  Transmission Date: 20140711
  Serious: Yes (Hospitalization)
  Sender: FDA-Public Use
  Company Number: FR-JNJFOC-20131103574

PATIENT
  Age: 80 Year
  Sex: Male

DRUGS (10)
  1. RISPERDAL [Suspect]
     Indication: SCHIZOPHRENIA, PARANOID TYPE
     Route: 048
     Dates: end: 20131005
  2. THERALENE [Suspect]
     Indication: PRODUCT USED FOR UNKNOWN INDICATION
     Route: 048
     Dates: end: 20130930
  3. CYMBALTA [Suspect]
     Indication: PRODUCT USED FOR UNKNOWN INDICATION
     Route: 048
     Dates: end: 20130930
  4. OMEXEL [Suspect]
     Indication: PRODUCT USED FOR UNKNOWN INDICATION
     Route: 048
     Dates: end: 20130930
  5. SERESTA [Concomitant]
     Route: 065
  6. MODOPAR [Concomitant]
     Route: 048
  7. INEXIUM [Concomitant]
     Route: 065
  8. NOCTAMIDE [Concomitant]
     Route: 065
  9. OXEOL [Concomitant]
     Route: 065
  10. MOVICOL [Concomitant]
     Route: 065

REACTIONS (2)
  - Gastrointestinal obstruction [Recovered/Resolved]
  - Pneumonia aspiration [Unknown]
